FAERS Safety Report 7966618-4 (Version None)
Quarter: 2011Q4

REPORT INFORMATION
  Report Type: 
  Country: None (occurrence: None)
  Receive Date: 20111209
  Receipt Date: 20111201
  Transmission Date: 20120403
  Serious: Yes (Other)
  Sender: FDA-Public Use
  Company Number: IE-BIOGENIDEC-2011BI009435

PATIENT
  Age: 63 Year
  Sex: Female

DRUGS (3)
  1. DIOVAN HCT [Concomitant]
  2. BISOPROLOL FUMARATE [Concomitant]
  3. AVONEX [Suspect]
     Indication: PRODUCT USED FOR UNKNOWN INDICATION
     Route: 030
     Dates: start: 20081022

REACTIONS (1)
  - BREAST CANCER [None]
